FAERS Safety Report 14231661 (Version 1)
Quarter: 2017Q4

REPORT INFORMATION
  Report Type: Spontaneous
  Country: US (occurrence: US)
  Receive Date: 20171128
  Receipt Date: 20171128
  Transmission Date: 20180321
  Serious: No
  Sender: FDA-Public Use
  Company Number: US-GLAXOSMITHKLINE-US2017179337

PATIENT
  Sex: Female

DRUGS (4)
  1. PROMETHAZINE [Concomitant]
     Active Substance: PROMETHAZINE\PROMETHAZINE HYDROCHLORIDE
  2. VENTOLIN HFA [Suspect]
     Active Substance: ALBUTEROL SULFATE
     Indication: NASOPHARYNGITIS
     Dosage: 2 PUFF(S), BID
  3. PREDNISONE. [Concomitant]
     Active Substance: PREDNISONE
  4. VENTOLIN HFA [Suspect]
     Active Substance: ALBUTEROL SULFATE
     Indication: WHEEZING

REACTIONS (4)
  - Product use in unapproved indication [Unknown]
  - Increased bronchial secretion [Unknown]
  - Wrong technique in product usage process [Unknown]
  - Drug dose omission [Unknown]
